FAERS Safety Report 19954628 (Version 1)
Quarter: 2021Q4

REPORT INFORMATION
  Report Type: Spontaneous
  Country: US (occurrence: US)
  Receive Date: 20211014
  Receipt Date: 20211014
  Transmission Date: 20220303
  Serious: No
  Sender: FDA-Public Use
  Company Number: US-GLAXOSMITHKLINE-US2021AMR209948

PATIENT
  Age: 58 Year
  Sex: Female
  Weight: 79 kg

DRUGS (7)
  1. ALBUTEROL SULFATE [Suspect]
     Active Substance: ALBUTEROL SULFATE
     Indication: Product used for unknown indication
     Dosage: 3 TIME A DAY 4 HOURS AFTER THE NEBULIZER
  2. PFIZER-BIONTECH COVID-19 VACCINE [Suspect]
     Active Substance: TOZINAMERAN
     Indication: Prophylaxis
     Dosage: UNK
     Dates: start: 20210326
  3. PFIZER-BIONTECH COVID-19 VACCINE [Suspect]
     Active Substance: TOZINAMERAN
     Dosage: UNK
     Dates: start: 20210420
  4. ZITHROMAX [Suspect]
     Active Substance: AZITHROMYCIN DIHYDRATE
     Indication: Product used for unknown indication
     Dosage: UNK
  5. PREDNISONE [Suspect]
     Active Substance: PREDNISONE
     Indication: Product used for unknown indication
     Dosage: UNK
  6. ALBUTEROL [Suspect]
     Active Substance: ALBUTEROL
     Indication: Product used for unknown indication
     Dosage: UNK
  7. BUDESONIDE [Suspect]
     Active Substance: BUDESONIDE
     Indication: Chest pain
     Dosage: UNK

REACTIONS (9)
  - Chest pain [Unknown]
  - Dyspnoea [Unknown]
  - Cough [Unknown]
  - Lethargy [Unknown]
  - Dizziness [Unknown]
  - Discomfort [Unknown]
  - Heart rate increased [Unknown]
  - Weight increased [Unknown]
  - Product use in unapproved indication [Unknown]

NARRATIVE: CASE EVENT DATE: 20210301
